FAERS Safety Report 6191398-5 (Version None)
Quarter: 2009Q2

REPORT INFORMATION
  Report Type: 
  Country: None (occurrence: None)
  Receive Date: 20090515
  Receipt Date: 20090504
  Transmission Date: 20091009
  Serious: Yes (Hospitalization, Other)
  Sender: FDA-Public Use
  Company Number: DE-JNJFOC-20071001222

PATIENT
  Sex: Female
  Weight: 91.9 kg

DRUGS (3)
  1. INFLIXIMAB [Suspect]
     Route: 042
  2. INFLIXIMAB [Suspect]
     Indication: PSORIASIS
     Route: 042
  3. FEMRANETTE [Concomitant]
     Indication: CONTRACEPTION
     Route: 048

REACTIONS (2)
  - ARTHRITIS [None]
  - PSORIATIC ARTHROPATHY [None]
